FAERS Safety Report 8506878-4 (Version None)
Quarter: 2012Q3

REPORT INFORMATION
  Report Type: 
  Country: None (occurrence: None)
  Receive Date: 20120712
  Receipt Date: 20120709
  Transmission Date: 20120928
  Serious: No
  Sender: FDA-Public Use
  Company Number: US-PFIZER INC-2012046705

PATIENT
  Sex: Male
  Weight: 99 kg

DRUGS (1)
  1. IBUPROFEN (ADVIL) [Suspect]
     Indication: HEADACHE
     Dosage: 5-6 LIQUI-GELS, 3X/DAY TO 4X/DAY
     Route: 048
     Dates: start: 20120201

REACTIONS (5)
  - POLYSUBSTANCE DEPENDENCE [None]
  - INTENTIONAL DRUG MISUSE [None]
  - CIRCUMSTANCE OR INFORMATION CAPABLE OF LEADING TO MEDICATION ERROR [None]
  - LIVER FUNCTION TEST ABNORMAL [None]
  - OVERDOSE [None]
